FAERS Safety Report 9896809 (Version 2)
Quarter: 2014Q1

REPORT INFORMATION
  Report Type: Spontaneous
  Country: US (occurrence: US)
  Receive Date: 20140213
  Receipt Date: 20140213
  Transmission Date: 20141002
  Serious: No
  Sender: FDA-Public Use
  Company Number: US-BRISTOL-MYERS SQUIBB COMPANY-19217538

PATIENT
  Sex: Male
  Weight: 84.8 kg

DRUGS (5)
  1. ORENCIA FOR INJ 250 MG/VIAL [Suspect]
     Indication: RHEUMATOID ARTHRITIS
     Route: 058
     Dates: start: 201308
  2. PREDNISONE [Concomitant]
  3. METHOTREXATE [Concomitant]
  4. ALENDRONATE [Concomitant]
  5. OXYCODONE [Concomitant]

REACTIONS (2)
  - Bone pain [Recovered/Resolved]
  - Feeling hot [Recovered/Resolved]
